FAERS Safety Report 11467190 (Version 2)
Quarter: 2015Q4

REPORT INFORMATION
  Report Type: Report from Study
  Country: US (occurrence: US)
  Receive Date: 20150908
  Receipt Date: 20151126
  Transmission Date: 20160304
  Serious: No
  Sender: FDA-Public Use
  Company Number: US-AMGEN-USASL2015091079

PATIENT
  Age: 63 Year
  Sex: Female

DRUGS (1)
  1. ENBREL [Suspect]
     Active Substance: ETANERCEPT
     Indication: RHEUMATOID ARTHRITIS
     Dosage: 50 MG, ONCE A WEEK
     Route: 065
     Dates: start: 20150710, end: 201508

REACTIONS (6)
  - Fatigue [Unknown]
  - Insomnia [Unknown]
  - Arthropathy [Unknown]
  - Inappropriate schedule of drug administration [Unknown]
  - Electrocardiogram abnormal [Unknown]
  - Stress [Unknown]

NARRATIVE: CASE EVENT DATE: 2015
